FAERS Safety Report 7802198-1 (Version None)
Quarter: 2011Q4

REPORT INFORMATION
  Report Type: 
  Country: None (occurrence: None)
  Receive Date: 20111007
  Receipt Date: 20111007
  Transmission Date: 20120403
  Serious: Yes (Life-Threatening, Hospitalization)
  Sender: FDA-Public Use
  Company Number: None

PATIENT
  Age: 42 Year
  Sex: Male

DRUGS (1)
  1. HUMULIN R [Suspect]
     Indication: DIABETES MELLITUS
     Dosage: 75 UNITS
     Route: 058
     Dates: start: 20111006, end: 20111006

REACTIONS (5)
  - HYPOGLYCAEMIA [None]
  - OVERDOSE [None]
  - ROAD TRAFFIC ACCIDENT [None]
  - DRUG DISPENSING ERROR [None]
  - MEDICATION ERROR [None]
